FAERS Safety Report 7352202-2 (Version None)
Quarter: 2011Q1

REPORT INFORMATION
  Report Type: 
  Country: None (occurrence: None)
  Receive Date: 20110315
  Receipt Date: 20110215
  Transmission Date: 20110831
  Serious: No
  Sender: FDA-Public Use
  Company Number: US-B.I. PHARMACEUTICALS,INC./RIDGEFIELD-2011-BP-05705BP

PATIENT
  Sex: Male

DRUGS (7)
  1. PRADAXA [Suspect]
     Indication: ATRIAL FIBRILLATION
     Dosage: 300 MG
     Route: 048
     Dates: start: 20110201
  2. CELEXA [Suspect]
  3. CRESTOR [Concomitant]
     Indication: BLOOD CHOLESTEROL INCREASED
  4. FISH OIL [Concomitant]
  5. MULTIVIT [Concomitant]
     Indication: SUPPLEMENTATION THERAPY
  6. RAMIPRIL [Concomitant]
     Indication: HYPERTENSION
  7. MULTAQ [Suspect]
     Indication: ATRIAL FIBRILLATION
     Dates: start: 20110201

REACTIONS (2)
  - DIZZINESS [None]
  - FLUSHING [None]
